FAERS Safety Report 4905403-4 (Version None)
Quarter: 2006Q1

REPORT INFORMATION
  Report Type: 
  Country: None (occurrence: None)
  Receive Date: 20060208
  Receipt Date: 20051004
  Transmission Date: 20060701
  Serious: Yes (Hospitalization, Disabling, Other)
  Sender: FDA-Public Use
  Company Number: US-MERCK-0510MEX00002

PATIENT
  Age: 51 Year
  Sex: Male

DRUGS (10)
  1. VIOXX [Suspect]
     Indication: NECK INJURY
     Route: 048
     Dates: start: 19990101, end: 20041001
  2. VIOXX [Suspect]
     Indication: JOINT INJURY
     Route: 048
     Dates: start: 19990101, end: 20041001
  3. DIPYRONE AND VITAMIN B (UNSPECIFIED) [Concomitant]
     Route: 065
  4. ORPHENADRINE CITRATE [Concomitant]
     Indication: NECK INJURY
     Route: 065
  5. ORPHENADRINE CITRATE [Concomitant]
     Indication: JOINT INJURY
     Route: 065
  6. ACETAMINOPHEN AND ORPHENADRINE CITRATE [Concomitant]
     Indication: NECK INJURY
     Route: 065
  7. ACETAMINOPHEN AND ORPHENADRINE CITRATE [Concomitant]
     Indication: JOINT INJURY
     Route: 065
  8. DEXAMETHASONE [Concomitant]
     Indication: NECK INJURY
     Route: 030
  9. DEXAMETHASONE [Concomitant]
     Indication: JOINT INJURY
     Route: 030
  10. ASPIRIN [Concomitant]
     Route: 065

REACTIONS (3)
  - ARRHYTHMIA [None]
  - CORONARY ARTERY DISEASE [None]
  - MYOCARDIAL INFARCTION [None]
